FAERS Safety Report 11120131 (Version 1)
Quarter: 2015Q2

REPORT INFORMATION
  Report Type: Spontaneous
  Country: CN (occurrence: CN)
  Receive Date: 20150518
  Receipt Date: 20150518
  Transmission Date: 20150821
  Serious: Yes (Hospitalization)
  Sender: FDA-Public Use
  Company Number: PHHY2015CN057588

PATIENT
  Age: 59 Year
  Sex: Male
  Weight: 65 kg

DRUGS (1)
  1. ACLASTA [Suspect]
     Active Substance: ZOLEDRONIC ACID
     Indication: OSTEOPOROSIS
     Dosage: 5 MG, UNK
     Route: 042
     Dates: start: 20150424

REACTIONS (10)
  - Chest pain [Recovered/Resolved]
  - Hypotension [Recovered/Resolved]
  - Anaphylactic shock [Recovered/Resolved]
  - Lacrimation increased [Recovered/Resolved]
  - Pain [Recovered/Resolved]
  - Angina pectoris [Recovered/Resolved]
  - Sinus bradycardia [Recovered/Resolved]
  - Heart rate decreased [Recovered/Resolved]
  - Dyspnoea [Unknown]
  - Chest discomfort [Unknown]

NARRATIVE: CASE EVENT DATE: 20150424
